FAERS Safety Report 15846253 (Version 4)
Quarter: 2019Q2

REPORT INFORMATION
  Report Type: Spontaneous
  Country: FR (occurrence: FR)
  Receive Date: 20190120
  Receipt Date: 20190405
  Transmission Date: 20190711
  Serious: Yes (Other)
  Sender: FDA-Public Use
  Company Number: PHHY2019FR005780

PATIENT
  Age: 67 Year
  Sex: Male

DRUGS (2)
  1. BRIMONIDINE [Suspect]
     Active Substance: BRIMONIDINE TARTRATE
     Indication: OPEN ANGLE GLAUCOMA
     Dosage: UNK UNK, BID
     Route: 047
     Dates: start: 2015
  2. DORZOLAMIDE TIMOLOL [Concomitant]
     Active Substance: DORZOLAMIDE
     Indication: OPEN ANGLE GLAUCOMA
     Route: 065

REACTIONS (10)
  - Pruritus [Recovered/Resolved]
  - Intraocular pressure increased [Unknown]
  - Drug intolerance [Recovered/Resolved]
  - Ocular surface disease [Unknown]
  - Corneal neovascularisation [Recovering/Resolving]
  - Concomitant disease aggravated [Unknown]
  - Toxicity to various agents [Unknown]
  - Urticaria [Recovered/Resolved]
  - Conjunctivitis [Recovered/Resolved]
  - Hyperaemia [Unknown]

NARRATIVE: CASE EVENT DATE: 2015
